FAERS Safety Report 4351493-X (Version None)
Quarter: 2004Q2

REPORT INFORMATION
  Report Type: 
  Country: None (occurrence: None)
  Receive Date: 20040430
  Receipt Date: 20040430
  Transmission Date: 20050107
  Serious: Yes (Life-Threatening, Hospitalization)
  Sender: FDA-Public Use
  Company Number: None

PATIENT
  Age: 90 Year
  Sex: Female
  Weight: 68 kg

DRUGS (8)
  1. METHADONE HCL [Suspect]
  2. GABAPENTIN [Suspect]
     Indication: NEUROPATHY
     Dosage: 600 MG PO Q 8 HRS
     Route: 048
  3. LASIX [Concomitant]
  4. THEO-DUR [Concomitant]
  5. CELEXA [Concomitant]
  6. NITROPAN XL [Concomitant]
  7. ULTRAM [Concomitant]
  8. ARICEPT [Concomitant]

REACTIONS (7)
  - ACUTE RESPIRATORY FAILURE [None]
  - COMA [None]
  - DYSARTHRIA [None]
  - MUCOSAL INFLAMMATION [None]
  - NEUTROPHIL COUNT DECREASED [None]
  - PYREXIA [None]
  - WHITE BLOOD CELL COUNT DECREASED [None]
